FAERS Safety Report 6754507-2 (Version None)
Quarter: 2010Q2

REPORT INFORMATION
  Report Type: 
  Country: None (occurrence: None)
  Receive Date: 20100527
  Receipt Date: 20100521
  Transmission Date: 20101027
  Serious: Yes (Other)
  Sender: FDA-Public Use
  Company Number: A0860763A

PATIENT
  Age: 34 Year
  Sex: Male

DRUGS (1)
  1. ASPIRIN + CAFFEINE + SALICYLAMIDE POWDER (ASPIRIN+CAFFEINE+SALICYLA) [Suspect]
     Indication: HEADACHE

REACTIONS (1)
  - HAEMATOCHEZIA [None]
